FAERS Safety Report 9581435 (Version 2)
Quarter: 2013Q4

REPORT INFORMATION
  Report Type: Report from Study
  Country: AR (occurrence: AR)
  Receive Date: 20131002
  Receipt Date: 20131002
  Transmission Date: 20140711
  Serious: Yes (Hospitalization, Other)
  Sender: FDA-Public Use
  Company Number: PHHY2013AR094207

PATIENT
  Sex: Male

DRUGS (1)
  1. DIOVAN [Suspect]
     Indication: HYPERTENSION
     Dosage: 1 DF (80MG), DAILY
     Route: 048

REACTIONS (4)
  - Arterial occlusive disease [Recovered/Resolved]
  - Venous injury [Recovered/Resolved]
  - Agitation [Recovered/Resolved]
  - Cough [Recovered/Resolved]
